FAERS Safety Report 15208949 (Version 11)
Quarter: 2018Q4

REPORT INFORMATION
  Report Type: Report from Study
  Country: DE (occurrence: DE)
  Receive Date: 20180727
  Receipt Date: 20181023
  Transmission Date: 20190204
  Serious: Yes (Death)
  Sender: FDA-Public Use
  Company Number: PHHO2018DE008631

PATIENT
  Age: 82 Year
  Sex: Female
  Weight: 80 kg

DRUGS (11)
  1. BISOPROLOL [Suspect]
     Active Substance: BISOPROLOL
     Indication: CORONARY ARTERY DISEASE
     Dosage: 3 MG, QD
     Route: 048
     Dates: start: 20180715
  2. BLINDED NO TREATMENT RECEIVED [Suspect]
     Active Substance: INVESTIGATIONAL PRODUCT
     Dosage: NO TREATMENT
     Route: 065
  3. SIMVASTATIN. [Concomitant]
     Active Substance: SIMVASTATIN
     Indication: DYSLIPIDAEMIA
     Dosage: 40 MG, QD
     Route: 048
     Dates: start: 20180718, end: 20180721
  4. BLINDED RAMIPRIL [Suspect]
     Active Substance: RAMIPRIL
     Dosage: NO TREATMENT
     Route: 065
  5. TICAGRELOR. [Concomitant]
     Active Substance: TICAGRELOR
     Indication: INVESTIGATION
     Dosage: 90 MG, BID
     Route: 048
     Dates: start: 20180715
  6. TORASEMID [Concomitant]
     Active Substance: TORSEMIDE
     Indication: CORONARY ARTERY DISEASE
     Dosage: 20 MG, QD
     Route: 048
     Dates: start: 20180715
  7. BLINDED LCZ696 [Suspect]
     Active Substance: SACUBITRIL\VALSARTAN
     Dosage: NO TREATMENT
     Route: 065
  8. DIOVAN [Suspect]
     Active Substance: VALSARTAN
     Dosage: NO TREATMENT
     Route: 065
  9. ZEBETA [Suspect]
     Active Substance: BISOPROLOL FUMARATE
     Indication: CORONARY ARTERY DISEASE
     Dosage: 3 MG, QD
     Route: 048
     Dates: start: 20180715
  10. EPLERENONE. [Concomitant]
     Active Substance: EPLERENONE
     Indication: CORONARY ARTERY DISEASE
     Dosage: 25 MG, QD
     Route: 048
     Dates: start: 20180715
  11. VALSARTAN. [Concomitant]
     Active Substance: VALSARTAN
     Indication: HYPERTENSION
     Dosage: 80 MG, QD
     Route: 048
     Dates: start: 20180715, end: 20180720

REACTIONS (1)
  - Bradycardia [Fatal]

NARRATIVE: CASE EVENT DATE: 20180719
